FAERS Safety Report 5135485-9 (Version None)
Quarter: 2006Q4

REPORT INFORMATION
  Report Type: 
  Country: None (occurrence: None)
  Receive Date: 20061026
  Receipt Date: 20061020
  Transmission Date: 20070319
  Serious: Yes (Other)
  Sender: FDA-Public Use
  Company Number: 2006UW20320

PATIENT
  Age: 81 Year
  Sex: Male
  Weight: 86.6 kg

DRUGS (4)
  1. CASODEX [Suspect]
     Indication: PROSTATE CANCER
     Route: 048
     Dates: start: 20050101
  2. KETOCONAZOLE [Concomitant]
  3. FLURON [Concomitant]
  4. HYDROCORTISONE ACETATE [Concomitant]

REACTIONS (4)
  - BONE DISORDER [None]
  - BONE NEOPLASM MALIGNANT [None]
  - BONE PAIN [None]
  - PROSTATIC SPECIFIC ANTIGEN ABNORMAL [None]
